FAERS Safety Report 6871472-8 (Version None)
Quarter: 2010Q3

REPORT INFORMATION
  Report Type: 
  Country: None (occurrence: None)
  Receive Date: 20100723
  Receipt Date: 20100716
  Transmission Date: 20110219
  Serious: Yes (Hospitalization, Other)
  Sender: FDA-Public Use
  Company Number: GB-CEPHALON-2010003877

PATIENT
  Sex: Female

DRUGS (2)
  1. TREANDA [Suspect]
     Indication: LYMPHOMA
     Route: 042
     Dates: start: 20100323
  2. TREANDA [Suspect]
     Route: 042
     Dates: start: 20100422, end: 20100608

REACTIONS (6)
  - BURNING SENSATION [None]
  - DIARRHOEA [None]
  - FATIGUE [None]
  - FEELING HOT [None]
  - INTESTINAL FUNCTIONAL DISORDER [None]
  - NEUTROPHIL COUNT DECREASED [None]
